FAERS Safety Report 18521407 (Version 1)
Quarter: 2020Q4

REPORT INFORMATION
  Report Type: Spontaneous
  Country: US (occurrence: US)
  Receive Date: 20201118
  Receipt Date: 20201118
  Transmission Date: 20210114
  Serious: No
  Sender: FDA-Public Use
  Company Number: None

PATIENT
  Age: 42 Year
  Sex: Male

DRUGS (7)
  1. OMEPRAZOLE. [Concomitant]
     Active Substance: OMEPRAZOLE
  2. ONDANSETRON [Concomitant]
     Active Substance: ONDANSETRON
  3. AMBRISENTAN [Suspect]
     Active Substance: AMBRISENTAN
     Indication: PULMONARY HYPERTENSION
  4. TADALAFIL. [Concomitant]
     Active Substance: TADALAFIL
  5. XANAX [Concomitant]
     Active Substance: ALPRAZOLAM
  6. INVEGA [Concomitant]
     Active Substance: PALIPERIDONE
  7. UPTRAVI [Concomitant]
     Active Substance: SELEXIPAG

REACTIONS (2)
  - Extra dose administered [None]
  - Memory impairment [None]

NARRATIVE: CASE EVENT DATE: 20201117
